FAERS Safety Report 21596380 (Version 1)
Quarter: 2022Q4

REPORT INFORMATION
  Report Type: Other
  Country: ID (occurrence: None)
  Receive Date: 20221115
  Receipt Date: 20221115
  Transmission Date: 20230112
  Serious: Yes (Life-Threatening, Hospitalization)
  Sender: FDA-Public Use
  Company Number: ID-DEXPHARM-20220880

PATIENT
  Age: 58 Year
  Sex: Male

DRUGS (6)
  1. DICLOFENAC [Suspect]
     Active Substance: DICLOFENAC
     Indication: Limb discomfort
  2. DEXAMETHASONE [Suspect]
     Active Substance: DEXAMETHASONE
     Route: 050
  3. ASPIRIN [Suspect]
     Active Substance: ASPIRIN
  4. CLOPIDOGREL [Suspect]
     Active Substance: CLOPIDOGREL BISULFATE
  5. AMLODIPINE [Concomitant]
     Active Substance: AMLODIPINE BESYLATE
  6. SIMVASTATIN [Concomitant]
     Active Substance: SIMVASTATIN

REACTIONS (2)
  - Kounis syndrome [Unknown]
  - Off label use [Unknown]
